FAERS Safety Report 5756135-4 (Version None)
Quarter: 2008Q2

REPORT INFORMATION
  Report Type: 
  Country: None (occurrence: None)
  Receive Date: 20080602
  Receipt Date: 20080519
  Transmission Date: 20081010
  Serious: Yes (Death, Hospitalization)
  Sender: FDA-Public Use
  Company Number: ES-GENENTECH-261665

PATIENT
  Sex: Male
  Weight: 64 kg

DRUGS (3)
  1. BEVACIZUMAB [Suspect]
     Indication: COLON CANCER METASTATIC
     Dosage: 480 MG, Q3W
     Route: 042
     Dates: start: 20080313, end: 20080417
  2. OXALIPLATIN [Suspect]
     Indication: COLORECTAL CANCER METASTATIC
     Dosage: 220 MG, Q3W
     Route: 042
     Dates: start: 20080313, end: 20080417
  3. XELODA [Suspect]
     Indication: COLORECTAL CANCER METASTATIC
     Dosage: 3500 MG, Q21D
     Route: 048
     Dates: start: 20080313, end: 20080417

REACTIONS (1)
  - GASTROENTERITIS [None]
